FAERS Safety Report 19653859 (Version 18)
Quarter: 2023Q4

REPORT INFORMATION
  Report Type: Report from Study
  Country: DE (occurrence: DE)
  Receive Date: 20210803
  Receipt Date: 20231010
  Transmission Date: 20240110
  Serious: Yes (Other)
  Sender: FDA-Public Use
  Company Number: DE-TAKEDA-2021TUS042126

PATIENT
  Age: 36 Year
  Sex: Female

DRUGS (38)
  1. PARATHYROID HORMONE [Suspect]
     Active Substance: PARATHYROID HORMONE
     Indication: Hypoparathyroidism
     Dosage: 25 MICROGRAM, QD
     Route: 058
     Dates: start: 20170928
  2. PARATHYROID HORMONE [Suspect]
     Active Substance: PARATHYROID HORMONE
     Indication: Hypoparathyroidism
     Dosage: 25 MICROGRAM, QD
     Route: 058
     Dates: start: 20170928
  3. PARATHYROID HORMONE [Suspect]
     Active Substance: PARATHYROID HORMONE
     Indication: Hypoparathyroidism
     Dosage: 25 MICROGRAM, QD
     Route: 058
     Dates: start: 20170928
  4. PARATHYROID HORMONE [Suspect]
     Active Substance: PARATHYROID HORMONE
     Dosage: 25 MICROGRAM, QD
     Route: 058
  5. PARATHYROID HORMONE [Suspect]
     Active Substance: PARATHYROID HORMONE
     Dosage: 25 MICROGRAM, QD
     Route: 058
  6. PARATHYROID HORMONE [Suspect]
     Active Substance: PARATHYROID HORMONE
     Dosage: 25 MICROGRAM, QD
     Route: 058
  7. PARATHYROID HORMONE [Suspect]
     Active Substance: PARATHYROID HORMONE
     Dosage: 50 MICROGRAM, BID
     Route: 058
  8. PARATHYROID HORMONE [Suspect]
     Active Substance: PARATHYROID HORMONE
     Dosage: 50 MICROGRAM, BID
     Route: 058
  9. PARATHYROID HORMONE [Suspect]
     Active Substance: PARATHYROID HORMONE
     Dosage: 50 MICROGRAM, BID
     Route: 058
  10. PARATHYROID HORMONE [Suspect]
     Active Substance: PARATHYROID HORMONE
     Dosage: 25 MICROGRAM, QD
     Route: 058
  11. PARATHYROID HORMONE [Suspect]
     Active Substance: PARATHYROID HORMONE
     Dosage: 25 MICROGRAM, QD
     Route: 058
  12. PARATHYROID HORMONE [Suspect]
     Active Substance: PARATHYROID HORMONE
     Dosage: 25 MICROGRAM, QD
     Route: 058
  13. PARATHYROID HORMONE [Suspect]
     Active Substance: PARATHYROID HORMONE
     Dosage: 25 MICROGRAM, BID
     Route: 058
     Dates: start: 20170929
  14. PARATHYROID HORMONE [Suspect]
     Active Substance: PARATHYROID HORMONE
     Dosage: 25 MICROGRAM, BID
     Route: 058
     Dates: start: 20170929
  15. PARATHYROID HORMONE [Suspect]
     Active Substance: PARATHYROID HORMONE
     Dosage: 25 MICROGRAM, BID
     Route: 058
     Dates: start: 20170929
  16. PANTOPRAZOLE [Suspect]
     Active Substance: PANTOPRAZOLE
     Indication: Gastrointestinal disorder
     Dosage: 20 MILLIGRAM, QD
     Route: 048
  17. PANTOPRAZOLE [Suspect]
     Active Substance: PANTOPRAZOLE
     Indication: Gastrointestinal disorder prophylaxis
     Dosage: 25 MILLIGRAM, QD
     Route: 048
  18. CANDESARTAN [Suspect]
     Active Substance: CANDESARTAN
     Indication: Hypertension
     Dosage: 16 MILLIGRAM, QD
     Route: 048
  19. CORTISONE [Suspect]
     Active Substance: CORTISONE
     Indication: Product used for unknown indication
     Dosage: 5 MILLIGRAM, QD
     Route: 048
  20. CORTISONE [Suspect]
     Active Substance: CORTISONE
     Dosage: 5 MILLIGRAM, QD
     Route: 048
     Dates: start: 20210726
  21. LEVOTHYROXINE SODIUM [Concomitant]
     Active Substance: LEVOTHYROXINE SODIUM
     Indication: Thyroidectomy
     Dosage: 150 MICROGRAM, QD
     Route: 048
  22. ADALIMUMAB [Concomitant]
     Active Substance: ADALIMUMAB
     Indication: Hypokalaemia
     Dosage: 40 MILLIGRAM, Q2WEEKS
     Route: 048
  23. ADALIMUMAB [Concomitant]
     Active Substance: ADALIMUMAB
     Indication: Crohn^s disease
  24. CALCIUM CARBONATE\CHOLECALCIFEROL [Concomitant]
     Active Substance: CALCIUM CARBONATE\CHOLECALCIFEROL
     Indication: Hypoparathyroidism
     Dosage: UNK UNK, QD
     Route: 048
  25. POTASSIUM CHLORIDE [Concomitant]
     Active Substance: POTASSIUM CHLORIDE
     Indication: Hypokalaemia
     Dosage: UNK
     Route: 048
  26. POTASSIUM CHLORIDE [Concomitant]
     Active Substance: POTASSIUM CHLORIDE
     Dosage: 9 DOSAGE FORM, QD
     Route: 048
  27. ADALIMUMAB [Concomitant]
     Active Substance: ADALIMUMAB
     Indication: Crohn^s disease
     Dosage: 40 MILLIGRAM, Q2WEEKS
     Route: 058
  28. XIPAMIDE [Concomitant]
     Active Substance: XIPAMIDE
     Indication: Oedema
     Dosage: 20 MILLIGRAM, QD
     Route: 048
  29. XIPAMIDE [Concomitant]
     Active Substance: XIPAMIDE
     Indication: Hypertension
  30. CALCIUM [Concomitant]
     Active Substance: CALCIUM
     Indication: Hypoparathyroidism
     Dosage: UNK
     Route: 048
  31. KALIUM-R [Concomitant]
     Indication: Hypokalaemia
     Dosage: 9 DOSAGE FORM, QD
     Route: 048
  32. CALCIUM CARBONATE [Concomitant]
     Active Substance: CALCIUM CARBONATE
     Indication: Hypoparathyroidism
     Dosage: UNK UNK, QD
     Route: 048
  33. SPIRONOLACTONE [Concomitant]
     Active Substance: SPIRONOLACTONE
     Indication: Oedema
     Dosage: 25 MILLIGRAM, QD
     Route: 048
  34. MAGNESIUM [Concomitant]
     Active Substance: MAGNESIUM
     Indication: Hypoparathyroidism
     Dosage: UNK UNK, QD
     Route: 048
  35. CALCITRAT [Concomitant]
     Indication: Hypoparathyroidism
     Dosage: UNK UNK, QD
     Route: 048
  36. CALCITRIOL [Concomitant]
     Active Substance: CALCITRIOL
     Indication: Hypoparathyroidism
     Dosage: UNK
     Route: 048
  37. CHOLECALCIFEROL [Concomitant]
     Active Substance: CHOLECALCIFEROL
     Indication: Hypoparathyroidism
     Dosage: UNK UNK, QD
     Route: 065
  38. RIBOFLAVIN 5^-PHOSPHATE SODIUM ANHYDROUS [Concomitant]
     Active Substance: RIBOFLAVIN 5^-PHOSPHATE SODIUM ANHYDROUS
     Dosage: UNK
     Route: 048

REACTIONS (14)
  - Hypocalcaemia [Recovered/Resolved]
  - Abortion spontaneous [Recovered/Resolved]
  - Bone metabolism biochemical marker increased [Not Recovered/Not Resolved]
  - Weight decreased [Recovered/Resolved]
  - Weight increased [Recovered/Resolved]
  - Maternal exposure during breast feeding [Recovered/Resolved]
  - Device issue [Recovered/Resolved]
  - Paraesthesia [Recovered/Resolved]
  - Premature delivery [Recovered/Resolved]
  - Influenza [Recovered/Resolved]
  - Diarrhoea [Recovered/Resolved]
  - Pregnancy [Recovered/Resolved]
  - Off label use [Not Recovered/Not Resolved]
  - Maternal exposure during pregnancy [Recovered/Resolved]

NARRATIVE: CASE EVENT DATE: 20170928
